FAERS Safety Report 8962278 (Version 1)
Quarter: 2012Q4

REPORT INFORMATION
  Report Type: 
  Country: NL (occurrence: NL)
  Receive Date: 20121212
  Receipt Date: 20121212
  Transmission Date: 20130627
  Serious: Yes (Hospitalization)
  Sender: FDA-Public Use
  Company Number: NL-PFIZER INC-2012308753

PATIENT
  Age: 29 Year
  Sex: Female
  Weight: 45 kg

DRUGS (6)
  1. GENOTROPIN [Suspect]
     Dosage: 0.9 mg, 1x/day, 7 injections/week
     Route: 058
     Dates: start: 20050523
  2. ETHINYLESTRADIOL [Concomitant]
     Indication: LUTEINISING HORMONE DEFICIENCY
     Dosage: UNK
     Dates: start: 19961126
  3. ETHINYLESTRADIOL [Concomitant]
     Indication: FOLLICLE-STIMULATING HORMONE DEFICIENCY
  4. ETHINYLESTRADIOL [Concomitant]
     Indication: OVARIAN DISORDER
  5. ETHINYLESTRADIOL [Concomitant]
     Indication: HYPOGONADISM
  6. LEVOTHYROXINE SODIUM [Concomitant]
     Indication: UNSPECIFIED HYPOTHYROIDISM
     Dosage: UNK
     Dates: start: 19880628

REACTIONS (1)
  - Ear disorder [Unknown]
